FAERS Safety Report 6243600-9 (Version None)
Quarter: 2009Q2

REPORT INFORMATION
  Report Type: 
  Country: None (occurrence: None)
  Receive Date: 20090624
  Receipt Date: 20090612
  Transmission Date: 20091009
  Serious: Yes (Life-Threatening)
  Sender: FDA-Public Use
  Company Number: DK-WYE-G03846809

PATIENT
  Sex: Male
  Weight: 111 kg

DRUGS (13)
  1. RELISTOR [Suspect]
     Indication: CONSTIPATION
     Route: 058
     Dates: start: 20090517, end: 20090517
  2. PLENDIL [Concomitant]
     Indication: HYPERTENSION
     Route: 048
     Dates: end: 20090521
  3. FURIX [Concomitant]
     Indication: DIURETIC THERAPY
     Route: 048
     Dates: end: 20090522
  4. SPIRON [Concomitant]
     Indication: DIURETIC THERAPY
     Dates: end: 20090522
  5. LACTULOSE [Concomitant]
     Indication: CONSTIPATION
     Route: 048
  6. AMIODARONE [Concomitant]
     Indication: ATRIAL FIBRILLATION
     Dosage: 1200 MG EVERY
     Route: 042
     Dates: start: 20090517, end: 20090525
  7. PINEX [Concomitant]
     Indication: PAIN
     Route: 048
  8. RILUTEK [Concomitant]
     Indication: AMYOTROPHIC LATERAL SCLEROSIS
     Route: 048
  9. NEXIUM [Concomitant]
     Indication: GASTRIC ULCER
     Route: 042
  10. SODIUM PICOSULFATE [Concomitant]
     Indication: CONSTIPATION
     Dosage: 7.5 MG/ML EVERY
     Route: 048
  11. CEFUROXIME [Concomitant]
     Indication: LUNG INFECTION
     Dates: start: 20090517, end: 20090521
  12. CIPRALEX [Concomitant]
     Indication: DEPRESSION
     Route: 048
  13. FRAGMIN [Concomitant]
     Indication: THROMBOSIS PROPHYLAXIS
     Route: 058

REACTIONS (2)
  - LARGE INTESTINE PERFORATION [None]
  - SEPTIC SHOCK [None]
